FAERS Safety Report 15454949 (Version 1)
Quarter: 2018Q3

REPORT INFORMATION
  Report Type: Spontaneous
  Country: US (occurrence: US)
  Receive Date: 20180927
  Receipt Date: 20180927
  Transmission Date: 20181010
  Serious: Yes (Hospitalization)
  Sender: FDA-Public Use
  Company Number: None

PATIENT
  Age: 15 Year
  Sex: Male
  Weight: 49.5 kg

DRUGS (6)
  1. METHOTREXATE. [Suspect]
     Active Substance: METHOTREXATE
     Dates: end: 20180703
  2. CYTARABINE. [Suspect]
     Active Substance: CYTARABINE
     Dates: end: 20180623
  3. DAUNORUBICIN [Suspect]
     Active Substance: DAUNORUBICIN
     Dates: end: 20180717
  4. PEG/L?ASPARAGINASE [Suspect]
     Active Substance: PEGASPARGASE
     Dates: end: 20180629
  5. PREDNISONE. [Suspect]
     Active Substance: PREDNISONE
     Dates: end: 20180722
  6. VINCRISTINE SULFATE. [Suspect]
     Active Substance: VINCRISTINE SULFATE
     Dates: end: 20180719

REACTIONS (12)
  - Tachycardia [None]
  - Pain in extremity [None]
  - Constipation [None]
  - Anaemia [None]
  - Pseudomonas infection [None]
  - Large intestine perforation [None]
  - Seizure [None]
  - Posterior reversible encephalopathy syndrome [None]
  - Abdominal pain [None]
  - Febrile neutropenia [None]
  - Pain in jaw [None]
  - Blood pressure increased [None]

NARRATIVE: CASE EVENT DATE: 20180723
